FAERS Safety Report 6263273-9 (Version None)
Quarter: 2009Q3

REPORT INFORMATION
  Report Type: 
  Country: None (occurrence: None)
  Receive Date: 20090706
  Receipt Date: 20090706
  Transmission Date: 20100115
  Serious: Yes (Other)
  Sender: FDA-Public Use
  Company Number: None

PATIENT
  Age: 53 Year
  Sex: Female
  Weight: 53.5244 kg

DRUGS (6)
  1. NASACORT AQ [Suspect]
     Indication: HEADACHE
     Dosage: TWO SQUIRTS IN EACH NOSTRIL ONCE A DAY
     Dates: start: 20090620, end: 20090620
  2. NASACORT AQ [Suspect]
     Indication: HYPERSENSITIVITY
     Dosage: TWO SQUIRTS IN EACH NOSTRIL ONCE A DAY
     Dates: start: 20090620, end: 20090620
  3. NASACORT AQ [Suspect]
     Indication: RHINORRHOEA
     Dosage: TWO SQUIRTS IN EACH NOSTRIL ONCE A DAY
     Dates: start: 20090620, end: 20090620
  4. NASACORT AQ [Suspect]
     Indication: HEADACHE
     Dosage: TWO SQUIRTS IN EACH NOSTRIL ONCE A DAY
     Dates: start: 20090623, end: 20090623
  5. NASACORT AQ [Suspect]
     Indication: HYPERSENSITIVITY
     Dosage: TWO SQUIRTS IN EACH NOSTRIL ONCE A DAY
     Dates: start: 20090623, end: 20090623
  6. NASACORT AQ [Suspect]
     Indication: RHINORRHOEA
     Dosage: TWO SQUIRTS IN EACH NOSTRIL ONCE A DAY
     Dates: start: 20090623, end: 20090623

REACTIONS (2)
  - DIARRHOEA [None]
  - NAUSEA [None]
